FAERS Safety Report 13227128 (Version 2)
Quarter: 2017Q2

REPORT INFORMATION
  Report Type: Spontaneous
  Country: CN (occurrence: CN)
  Receive Date: 20170213
  Receipt Date: 20170421
  Transmission Date: 20170830
  Serious: Yes (Other)
  Sender: FDA-Public Use
  Company Number: CN-009507513-1702CHN004798

PATIENT
  Age: 86 Year
  Sex: Male
  Weight: 52.1 kg

DRUGS (2)
  1. IMIPENEM AND CILASTATIN [Suspect]
     Active Substance: CILASTATIN SODIUM\IMIPENEM
     Indication: INFECTION
     Dosage: 500 MG, QID
     Route: 041
     Dates: start: 20161119, end: 20161122
  2. SODIUM CHLORIDE. [Concomitant]
     Active Substance: SODIUM CHLORIDE
     Indication: INFUSION
     Dosage: 100 ML, QID
     Route: 042
     Dates: start: 20161119, end: 20161122

REACTIONS (1)
  - Ocular icterus [Recovering/Resolving]

NARRATIVE: CASE EVENT DATE: 20161122
